FAERS Safety Report 9181951 (Version 1)
Quarter: 2013Q1

REPORT INFORMATION
  Report Type: Spontaneous
  Country: US (occurrence: US)
  Receive Date: 20130322
  Receipt Date: 20130322
  Transmission Date: 20140127
  Serious: Yes (Other)
  Sender: FDA-Public Use
  Company Number: US-ABBOTT-13P-163-1063986-00

PATIENT
  Age: 40 Year
  Sex: Female

DRUGS (3)
  1. VICODIN [Suspect]
     Indication: PAIN IN EXTREMITY
  2. VICODIN [Suspect]
     Indication: BACK PAIN
  3. COPAXONE [Concomitant]
     Indication: MULTIPLE SCLEROSIS
     Dates: start: 20121129

REACTIONS (3)
  - Multiple sclerosis relapse [Unknown]
  - Drug ineffective [Unknown]
  - Hypoaesthesia [Unknown]
